FAERS Safety Report 8318730 (Version 2)
Quarter: 2013Q1

REPORT INFORMATION
  Report Type: Spontaneous
  Country: US (occurrence: US)
  Receive Date: 20120103
  Receipt Date: 20130222
  Transmission Date: 20140127
  Serious: Yes (Life-Threatening, Congenital Anomaly, Other)
  Sender: FDA-Public Use
  Company Number: US-PFIZER INC-2011288476

PATIENT
  Sex: Male

DRUGS (4)
  1. ZOLOFT [Suspect]
     Dosage: UNK
     Route: 064
     Dates: start: 20050501, end: 20050601
  2. PRENATAL VITAMINS [Concomitant]
     Dosage: UNK
     Route: 064
  3. IRON [Concomitant]
     Dosage: UNK
     Route: 064
  4. OMNICEF [Concomitant]
     Dosage: UNK
     Route: 064

REACTIONS (7)
  - Maternal exposure timing unspecified [Unknown]
  - Spina bifida [Unknown]
  - Hydrocephalus [Unknown]
  - Congenital anomaly [Unknown]
  - Meningomyelocele [Unknown]
  - Nervous system disorder [Unknown]
  - Premature baby [Unknown]
